FAERS Safety Report 9472471 (Version 1)
Quarter: 2013Q3

REPORT INFORMATION
  Report Type: Spontaneous
  Country: US (occurrence: None)
  Receive Date: 20130821
  Receipt Date: 20130821
  Transmission Date: 20140515
  Serious: Yes (Hospitalization)
  Sender: FDA-Public Use
  Company Number: None

PATIENT
  Age: 51 Year
  Sex: Female

DRUGS (4)
  1. CALCIUM LEUCOVORIN [Suspect]
     Indication: PANCREATIC CARCINOMA
     Route: 042
     Dates: start: 20130709
  2. 5-FU [Suspect]
  3. OXALIPLATIN [Suspect]
  4. ABRAXANE [Suspect]

REACTIONS (4)
  - Hypotension [None]
  - Hypotension [None]
  - Hypokalaemia [None]
  - Anaemia [None]
